FAERS Safety Report 12241417 (Version 1)
Quarter: 2016Q2

REPORT INFORMATION
  Report Type: Spontaneous
  Country: US (occurrence: None)
  Receive Date: 20160405
  Receipt Date: 20160405
  Transmission Date: 20160815
  Serious: Yes (Disabling, Other)
  Sender: FDA-Public Use
  Company Number: None

PATIENT
  Age: 30 Year
  Sex: Male
  Weight: 72.58 kg

DRUGS (2)
  1. FINASTERIDE 5MG, 1.25 MG MERCK [Suspect]
     Active Substance: FINASTERIDE
     Indication: ALOPECIA
     Route: 048
     Dates: start: 20141001, end: 20160404
  2. CLONAZAPAN [Concomitant]

REACTIONS (6)
  - Tension headache [None]
  - Bradyphrenia [None]
  - Cognitive disorder [None]
  - Amnesia [None]
  - Depressed level of consciousness [None]
  - Disturbance in attention [None]

NARRATIVE: CASE EVENT DATE: 20160404
